FAERS Safety Report 4831481-7 (Version None)
Quarter: 2005Q4

REPORT INFORMATION
  Report Type: 
  Country: None (occurrence: None)
  Receive Date: 20051116
  Receipt Date: 20051101
  Transmission Date: 20060501
  Serious: Yes (Disabling)
  Sender: FDA-Public Use
  Company Number: 2005-BP-19066RO

PATIENT
  Age: 35 Year
  Sex: Female
  Weight: 77.6 kg

DRUGS (6)
  1. DEXAMETHASONE [Suspect]
     Indication: HYPERSENSITIVITY
     Dosage: 4 MG BID 4-6 WEEKS/YEAR (4MG), PO 4 TO 6 WEEKS PER YEAR FOR LAST 10 YEARS
     Route: 048
  2. HYDROXYZINE [Concomitant]
  3. ZYRTEC [Concomitant]
  4. CALCIUM (CALCIUM) [Concomitant]
  5. VITAMIN D [Concomitant]
  6. VITAMIN B12 (VITAMIN B12 NOS) [Concomitant]

REACTIONS (6)
  - BONE DENSITY DECREASED [None]
  - FALL [None]
  - FOOT FRACTURE [None]
  - FRACTURE NONUNION [None]
  - TENDON RUPTURE [None]
  - WEIGHT INCREASED [None]
